FAERS Safety Report 23865094 (Version 1)
Quarter: 2024Q2

REPORT INFORMATION
  Report Type: Spontaneous
  Country: DE (occurrence: DE)
  Receive Date: 20240517
  Receipt Date: 20240517
  Transmission Date: 20240715
  Serious: Yes (Hospitalization, Other)
  Sender: FDA-Public Use
  Company Number: DE-DCGMA-23201857

PATIENT
  Age: 90 Year
  Sex: Female
  Weight: 62 kg

DRUGS (1)
  1. METHOTREXATE [Suspect]
     Active Substance: METHOTREXATE
     Indication: Rheumatoid arthritis
     Dosage: 10.000MG
     Route: 048
     Dates: start: 20230817, end: 20230823

REACTIONS (9)
  - Pancytopenia [Recovering/Resolving]
  - Overdose [Recovering/Resolving]
  - Febrile neutropenia [Recovering/Resolving]
  - Lip swelling [Recovering/Resolving]
  - Diarrhoea [Recovering/Resolving]
  - Stomatitis [Recovering/Resolving]
  - Swollen tongue [Recovering/Resolving]
  - Leukopenia [Recovering/Resolving]
  - Inappropriate schedule of product administration [Unknown]

NARRATIVE: CASE EVENT DATE: 20230817
